FAERS Safety Report 19873029 (Version 2)
Quarter: 2021Q3

REPORT INFORMATION
  Report Type: Report from Study
  Country: IT (occurrence: IT)
  Receive Date: 20210923
  Receipt Date: 20210930
  Transmission Date: 20211014
  Serious: Yes (Other)
  Sender: FDA-Public Use
  Company Number: IT-AUROBINDO-AUR-APL-2021-039682

PATIENT
  Age: 5 Year
  Sex: Male

DRUGS (3)
  1. TENOFOVIR DISOPROXIL [Suspect]
     Active Substance: TENOFOVIR DISOPROXIL
     Indication: ACUTE HEPATITIS B
     Dosage: 8 MILLIGRAM/KILOGRAM, ONCE A DAY [MAXIMUM: 300MG]
     Route: 048
     Dates: start: 2012
  2. TENOFOVIR DISOPROXIL [Suspect]
     Active Substance: TENOFOVIR DISOPROXIL
     Indication: CHRONIC HEPATITIS B
     Dosage: 8 MILLIGRAM/KILOGRAM (MAXIMUM: 300MG)
     Route: 048
     Dates: start: 2011
  3. ENTECAVIR. [Concomitant]
     Active Substance: ENTECAVIR
     Indication: PRODUCT USED FOR UNKNOWN INDICATION
     Dosage: 0.015 MILLIGRAM/KILOGRAM((MAX 0.5 MG)
     Route: 048

REACTIONS (2)
  - Off label use [Unknown]
  - Chronic kidney disease [Unknown]
